FAERS Safety Report 16716141 (Version 1)
Quarter: 2019Q3

REPORT INFORMATION
  Report Type: Spontaneous
  Country: US (occurrence: US)
  Receive Date: 20190819
  Receipt Date: 20190819
  Transmission Date: 20191005
  Serious: No
  Sender: FDA-Public Use
  Company Number: US-UPSHER-SMITH LABORATORIES, LLC-2019USL00338

PATIENT
  Sex: Male

DRUGS (1)
  1. KLOR-CON SPRINKLE [Suspect]
     Active Substance: POTASSIUM CHLORIDE

REACTIONS (2)
  - Muscle spasms [Recovered/Resolved]
  - Therapeutic product effect delayed [Recovered/Resolved]
